FAERS Safety Report 17473017 (Version 1)
Quarter: 2020Q1

REPORT INFORMATION
  Report Type: Spontaneous
  Country: IN (occurrence: IN)
  Receive Date: 20200228
  Receipt Date: 20200228
  Transmission Date: 20200409
  Serious: Yes (Other)
  Sender: FDA-Public Use
  Company Number: IN-SA-2020SA045194

PATIENT
  Age: 60 Year
  Sex: Male

DRUGS (2)
  1. ISONIAZID. [Suspect]
     Active Substance: ISONIAZID
     Indication: LYMPH NODE TUBERCULOSIS
     Dosage: 4 MONTHS 10 DAYS
  2. RIFAMPICIN [Suspect]
     Active Substance: RIFAMPIN
     Indication: LYMPH NODE TUBERCULOSIS
     Dosage: UNK

REACTIONS (11)
  - Dermatitis exfoliative generalised [Recovering/Resolving]
  - Skin hyperpigmentation [Recovering/Resolving]
  - Exfoliative rash [Recovering/Resolving]
  - Rash pruritic [Recovering/Resolving]
  - Alopecia [Recovered/Resolved]
  - Skin fissures [Recovering/Resolving]
  - Drug eruption [Recovering/Resolving]
  - Papule [Recovering/Resolving]
  - Skin plaque [Recovering/Resolving]
  - Skin hypertrophy [Recovering/Resolving]
  - Oedema peripheral [Recovering/Resolving]
